FAERS Safety Report 19683322 (Version 1)
Quarter: 2021Q3

REPORT INFORMATION
  Report Type: Spontaneous
  Country: US (occurrence: US)
  Receive Date: 20210811
  Receipt Date: 20210811
  Transmission Date: 20211014
  Serious: Yes (Hospitalization, Other)
  Sender: FDA-Public Use
  Company Number: US-IBIGEN-2021.10510

PATIENT
  Age: 22 Year
  Sex: Female

DRUGS (3)
  1. PIPERACILLIN/TAZOBACTAM [Suspect]
     Active Substance: PIPERACILLIN SODIUM\TAZOBACTAM SODIUM
     Indication: PELVIC INFLAMMATORY DISEASE
  2. AZITHROMYCIN ANHYDROUS. [Suspect]
     Active Substance: AZITHROMYCIN ANHYDROUS
     Indication: PELVIC INFLAMMATORY DISEASE
  3. METRONIDAZOLE. [Suspect]
     Active Substance: METRONIDAZOLE
     Indication: PELVIC INFLAMMATORY DISEASE

REACTIONS (12)
  - Drug ineffective [Unknown]
  - Acidosis [Recovered/Resolved]
  - Abdominal pain [Recovered/Resolved]
  - Pelvic inflammatory disease [Recovered/Resolved]
  - Haemoconcentration [Recovered/Resolved]
  - Hypotension [Recovered/Resolved]
  - Leukaemoid reaction [Recovered/Resolved]
  - Peritonitis [Recovered/Resolved]
  - Toxic shock syndrome [Recovered/Resolved]
  - Tachycardia [Recovered/Resolved]
  - Lymphoedema [Recovered/Resolved]
  - Clostridial infection [Recovered/Resolved]
